FAERS Safety Report 6413537-0 (Version None)
Quarter: 2009Q4

REPORT INFORMATION
  Report Type: 
  Country: None (occurrence: None)
  Receive Date: 20091026
  Receipt Date: 20091022
  Transmission Date: 20100525
  Serious: No
  Sender: FDA-Public Use
  Company Number: US-B.I. PHARMACEUTICALS,INC./RIDGEFIELD-2009-BP-12343BP

PATIENT
  Sex: Female

DRUGS (5)
  1. ZANTAC 150 [Suspect]
     Indication: DYSPEPSIA
     Dosage: 150 MG
     Route: 048
     Dates: start: 20091019, end: 20091021
  2. ZANTAC 150 [Suspect]
     Indication: ULCER
  3. NEXIUM [Suspect]
     Indication: DYSPEPSIA
     Dates: start: 20091019, end: 20091021
  4. NEXIUM [Suspect]
     Indication: ULCER
  5. SEASONIQUE [Concomitant]
     Indication: CONTRACEPTION

REACTIONS (2)
  - DRY MOUTH [None]
  - SALIVA ALTERED [None]
